FAERS Safety Report 4379300-X (Version None)
Quarter: 2004Q2

REPORT INFORMATION
  Report Type: 
  Country: None (occurrence: None)
  Receive Date: 20040614
  Receipt Date: 20040504
  Transmission Date: 20050107
  Serious: Yes (Other)
  Sender: FDA-Public Use
  Company Number: 2004202783US

PATIENT
  Age: 48 Year
  Sex: Female
  Weight: 57.1 kg

DRUGS (1)
  1. BEXTRA [Suspect]
     Dosage: 20 MG, QD, ORAL
     Route: 048

REACTIONS (1)
  - ULCER [None]
